FAERS Safety Report 18117737 (Version 1)
Quarter: 2020Q3

REPORT INFORMATION
  Report Type: Spontaneous
  Country: DK (occurrence: DK)
  Receive Date: 20200806
  Receipt Date: 20200806
  Transmission Date: 20201103
  Serious: Yes (Hospitalization)
  Sender: FDA-Public Use
  Company Number: DK-SAMSUNG BIOEPIS-SB-2020-24040

PATIENT
  Age: 73 Year
  Sex: Female

DRUGS (5)
  1. LANSOPRAZOLE. [Concomitant]
     Active Substance: LANSOPRAZOLE
     Indication: GASTROOESOPHAGEAL REFLUX DISEASE
     Route: 048
     Dates: start: 201801
  2. MOMETASONE [Concomitant]
     Active Substance: MOMETASONE
     Indication: RHINORRHOEA
     Route: 045
     Dates: start: 201809
  3. VAGIFEM [Concomitant]
     Active Substance: ESTRADIOL
     Indication: HORMONE THERAPY
     Route: 067
     Dates: start: 20180228
  4. BENEPALI [Suspect]
     Active Substance: ETANERCEPT
     Indication: RHEUMATOID ARTHRITIS
     Dosage: UNKNOWN,DOSAGE: UNCERTAINTY AS TO WHETHER IT IS GIVEN WEEKLY OR EVERY 10 DAYS.
     Route: 058
     Dates: start: 201608, end: 20200303
  5. TRIMOPAN [Concomitant]
     Indication: CYSTITIS
     Route: 048
     Dates: start: 20180223

REACTIONS (7)
  - Pleural effusion [Unknown]
  - Pulmonary function test decreased [Unknown]
  - Confusional state [Unknown]
  - Lymphangiosis carcinomatosa [Unknown]
  - Neuroendocrine carcinoma metastatic [Not Recovered/Not Resolved]
  - Chest pain [Unknown]
  - Dyspnoea [Unknown]

NARRATIVE: CASE EVENT DATE: 202003
